FAERS Safety Report 22610341 (Version 1)
Quarter: 2023Q2

REPORT INFORMATION
  Report Type: Spontaneous
  Country: US (occurrence: None)
  Receive Date: 20230615
  Receipt Date: 20230615
  Transmission Date: 20230722
  Serious: Yes (Life-Threatening, Hospitalization, Disabling)
  Sender: FDA-Public Use
  Company Number: None

PATIENT
  Age: 50 Year
  Sex: Male
  Weight: 154 kg

DRUGS (1)
  1. ENOXAPARIN [Suspect]
     Active Substance: ENOXAPARIN
     Indication: Deep vein thrombosis
     Dosage: FREQUENCY : TWICE A DAY;?
     Route: 058
     Dates: start: 2023, end: 20230615

REACTIONS (7)
  - Acute kidney injury [None]
  - Cardiac arrest [None]
  - Hypotension [None]
  - Ascites [None]
  - Splenic rupture [None]
  - Extravasation [None]
  - Haemoglobin decreased [None]

NARRATIVE: CASE EVENT DATE: 20230515
